FAERS Safety Report 7355638-9 (Version None)
Quarter: 2011Q1

REPORT INFORMATION
  Report Type: 
  Country: None (occurrence: None)
  Receive Date: 20110316
  Receipt Date: 20110310
  Transmission Date: 20110831
  Serious: Yes (Other)
  Sender: FDA-Public Use
  Company Number: US-PFIZER INC-2011053367

PATIENT
  Sex: Male

DRUGS (1)
  1. SULFASALAZINE [Suspect]
     Dosage: 500 MG, UNK

REACTIONS (3)
  - GALLBLADDER DISORDER [None]
  - GASTROINTESTINAL DISORDER [None]
  - COELIAC DISEASE [None]
